FAERS Safety Report 8259010-9 (Version None)
Quarter: 2012Q2

REPORT INFORMATION
  Report Type: 
  Country: None (occurrence: None)
  Receive Date: 20120404
  Receipt Date: 20120326
  Transmission Date: 20120825
  Serious: Yes (Hospitalization, Other)
  Sender: FDA-Public Use
  Company Number: US-JNJFOC-20101001066

PATIENT
  Sex: Male
  Weight: 226.8 kg

DRUGS (20)
  1. FOLIC ACID [Concomitant]
     Route: 048
  2. ASTELIN [Concomitant]
  3. METHOTREXATE [Concomitant]
     Indication: ARTHRITIS
     Route: 065
  4. GABAPENTIN [Concomitant]
     Indication: ARTHRITIS
     Route: 048
     Dates: start: 20040101
  5. REMICADE [Suspect]
     Dosage: 4 BOTTLES PER INFUSION
     Route: 042
     Dates: end: 20100101
  6. REMICADE [Suspect]
     Dosage: 4 BOTTLES PER INFUSION
     Route: 042
     Dates: start: 20050101
  7. SLOW FE [Concomitant]
  8. SUPER B COMPLEX [Concomitant]
  9. REMICADE [Suspect]
     Dosage: 4 BOTTLES PER INFUSION
     Route: 042
     Dates: start: 20100101, end: 20110101
  10. REMICADE [Suspect]
     Dosage: 4 BOTTLES PER INFUSION
     Route: 042
     Dates: end: 20050101
  11. TYLENOL [Concomitant]
  12. MAGNESIUM HYDROXIDE TAB [Concomitant]
  13. NASACORT [Concomitant]
  14. CENTRUM MULTIVITAMINS [Concomitant]
  15. CALCIUM CARBONATE [Concomitant]
  16. REMICADE [Suspect]
     Indication: RHEUMATOID ARTHRITIS
     Dosage: 4 BOTTLES PER INFUSION
     Route: 042
     Dates: start: 20110101, end: 20120117
  17. MORPHINE [Suspect]
     Indication: PROCEDURAL PAIN
     Route: 065
     Dates: start: 20100201, end: 20100201
  18. REMICADE [Suspect]
     Dosage: 4 BOTTLES PER INFUSION
     Route: 042
     Dates: start: 20110101, end: 20110101
  19. HYDROXYCHLOROQUINE SULFATE [Concomitant]
  20. CYMBALTA [Concomitant]
     Indication: ARTHRITIS
     Route: 048
     Dates: start: 20110101

REACTIONS (28)
  - NEURALGIA [None]
  - NUCLEAR MAGNETIC RESONANCE IMAGING ABNORMAL [None]
  - SURGERY [None]
  - BLOOD IRON DECREASED [None]
  - INGUINAL HERNIA [None]
  - TOOTH EXTRACTION [None]
  - GASTRIC BYPASS [None]
  - FALL [None]
  - HEAD INJURY [None]
  - NERVE COMPRESSION [None]
  - DRUG HYPERSENSITIVITY [None]
  - INTESTINAL PERFORATION [None]
  - SPINAL COLUMN INJURY [None]
  - TOOTH INFECTION [None]
  - ABDOMINAL HERNIA [None]
  - SPINAL DISORDER [None]
  - FEELING OF BODY TEMPERATURE CHANGE [None]
  - PAIN IN EXTREMITY [None]
  - PROCEDURAL PAIN [None]
  - OSTEOMYELITIS [None]
  - POSTOPERATIVE ADHESION [None]
  - VOMITING [None]
  - CONTUSION [None]
  - PRODUCT QUALITY ISSUE [None]
  - ABDOMINOPLASTY [None]
  - JOINT INJURY [None]
  - PRURITUS [None]
  - CONDITION AGGRAVATED [None]
